FAERS Safety Report 7494524-0 (Version None)
Quarter: 2011Q2

REPORT INFORMATION
  Report Type: 
  Country: None (occurrence: None)
  Receive Date: 20110520
  Receipt Date: 20110509
  Transmission Date: 20111010
  Serious: Yes (Other)
  Sender: FDA-Public Use
  Company Number: PHHY2011US38989

PATIENT
  Sex: Female

DRUGS (7)
  1. RITALIN LA [Suspect]
     Indication: BIPOLAR DISORDER
     Dosage: 10 MG, BID
     Route: 048
  2. TRIDIONE [Concomitant]
     Dosage: UNK
  3. TRAZODONE HCL [Concomitant]
     Dosage: UNK
  4. ASPIRIN [Concomitant]
     Dosage: UNK
  5. POTASSIUM [Concomitant]
     Dosage: UNK
  6. KLONOPIN [Concomitant]
     Dosage: UNK
  7. SEROQUEL [Concomitant]
     Dosage: UNK

REACTIONS (5)
  - ACCIDENT AT HOME [None]
  - HEADACHE [None]
  - INTRACRANIAL ANEURYSM [None]
  - BIPOLAR DISORDER [None]
  - LOSS OF CONSCIOUSNESS [None]
